FAERS Safety Report 9791670 (Version 1)
Quarter: 2014Q1

REPORT INFORMATION
  Report Type: Report from Study
  Country: US (occurrence: US)
  Receive Date: 20140102
  Receipt Date: 20140102
  Transmission Date: 20141002
  Serious: Yes (Death)
  Sender: FDA-Public Use
  Company Number: US-ROCHE-1318877

PATIENT
  Age: 73 Year
  Sex: Male

DRUGS (1)
  1. BONIVA [Suspect]
     Indication: THORACIC VERTEBRAL FRACTURE
     Route: 048

REACTIONS (1)
  - Death [Fatal]
